FAERS Safety Report 20361682 (Version 1)
Quarter: 2022Q1

REPORT INFORMATION
  Report Type: Other
  Country: US (occurrence: US)
  Receive Date: 20220121
  Receipt Date: 20220121
  Transmission Date: 20220423
  Serious: Yes (Life-Threatening)
  Sender: FDA-Public Use
  Company Number: US-SERVIER-S22000414

PATIENT

DRUGS (2)
  1. ONCASPAR [Suspect]
     Active Substance: PEGASPARGASE
     Indication: Acute lymphocytic leukaemia
     Dosage: UNK
     Route: 065
  2. TN UNSPECIFIED [Concomitant]
     Indication: Thrombosis prophylaxis
     Dosage: 2.5 MG, BID
     Route: 048

REACTIONS (2)
  - Shock haemorrhagic [Unknown]
  - Splenic rupture [Unknown]

NARRATIVE: CASE EVENT DATE: 20220101
